FAERS Safety Report 9938171 (Version 2)
Quarter: 2014Q1

REPORT INFORMATION
  Report Type: Report from Study
  Country: US (occurrence: US)
  Receive Date: 20140303
  Receipt Date: 20140303
  Transmission Date: 20141002
  Serious: No
  Sender: FDA-Public Use
  Company Number: US-ABBVIE-12P-163-0976385-00

PATIENT
  Age: 40 Year
  Sex: Female

DRUGS (5)
  1. HUMIRA [Suspect]
     Indication: COLITIS ULCERATIVE
     Dates: start: 20120211
  2. ADVIL [Concomitant]
     Indication: PAIN
  3. HYDROCODONE [Concomitant]
     Indication: PAIN
  4. FISH OIL [Concomitant]
     Indication: SUPPLEMENTATION THERAPY
  5. FLONASE [Concomitant]
     Indication: HYPERSENSITIVITY

REACTIONS (8)
  - Secretion discharge [Not Recovered/Not Resolved]
  - Colitis ulcerative [Not Recovered/Not Resolved]
  - Proctalgia [Not Recovered/Not Resolved]
  - Pain [Not Recovered/Not Resolved]
  - Drug ineffective [Unknown]
  - Urinary tract infection [Recovered/Resolved]
  - Micturition urgency [Unknown]
  - Dysuria [Unknown]
